FAERS Safety Report 21859135 (Version 4)
Quarter: 2023Q1

REPORT INFORMATION
  Report Type: Report from Study
  Country: US (occurrence: US)
  Receive Date: 20230113
  Receipt Date: 20230309
  Transmission Date: 20230418
  Serious: Yes (Other)
  Sender: FDA-Public Use
  Company Number: US-002147023-NVSC2023US007995

PATIENT
  Sex: Female

DRUGS (1)
  1. KISQALI [Suspect]
     Active Substance: RIBOCICLIB
     Indication: Breast cancer
     Dosage: 600 MG, QD
     Route: 048

REACTIONS (9)
  - Neuropathy peripheral [Unknown]
  - Thrombosis [Unknown]
  - Peripheral swelling [Unknown]
  - Tremor [Unknown]
  - Nervousness [Unknown]
  - Anxiety [Unknown]
  - Balance disorder [Unknown]
  - Dry skin [Unknown]
  - Skin exfoliation [Unknown]
